FAERS Safety Report 25689114 (Version 2)
Quarter: 2025Q3

REPORT INFORMATION
  Report Type: Report from Study
  Country: US (occurrence: US)
  Receive Date: 20250818
  Receipt Date: 20250826
  Transmission Date: 20251020
  Serious: Yes (Hospitalization)
  Sender: SUNOVION
  Company Number: US-SMPA-2025SPA010411

PATIENT
  Age: 71 Year
  Sex: Male

DRUGS (4)
  1. ORGOVYX [Suspect]
     Active Substance: RELUGOLIX
     Indication: Prostate cancer
     Route: 048
  2. ORGOVYX [Suspect]
     Active Substance: RELUGOLIX
     Route: 048
  3. NUBEQA [Concomitant]
     Active Substance: DAROLUTAMIDE
  4. PRAVASTATIN [Concomitant]
     Active Substance: PRAVASTATIN

REACTIONS (4)
  - Metabolic acidosis [Recovering/Resolving]
  - Dehydration [Unknown]
  - Faeces discoloured [Unknown]
  - Diarrhoea [Unknown]
